FAERS Safety Report 8796297 (Version 2)
Quarter: 2012Q4

REPORT INFORMATION
  Report Type: 
  Country: US (occurrence: US)
  Receive Date: 20120919
  Receipt Date: 20121112
  Transmission Date: 20130627
  Serious: No
  Sender: FDA-Public Use
  Company Number: US-PFIZER INC-2012229430

PATIENT
  Age: 77 Year
  Sex: Female

DRUGS (1)
  1. EFFEXOR XR [Suspect]
     Dosage: 75 mg, 1 pill daily
     Route: 048

REACTIONS (3)
  - Feeling abnormal [Unknown]
  - Tremor [Unknown]
  - Withdrawal syndrome [Unknown]
